FAERS Safety Report 18630913 (Version 1)
Quarter: 2020Q4

REPORT INFORMATION
  Report Type: Report from Study
  Country: None (occurrence: AR)
  Receive Date: 20201218
  Receipt Date: 20201218
  Transmission Date: 20210114
  Serious: Yes (Other)
  Sender: FDA-Public Use
  Company Number: AR-ABBVIE-19K-007-2684583-00

PATIENT
  Age: 62 Year
  Sex: Female

DRUGS (1)
  1. HUMIRA [Suspect]
     Active Substance: ADALIMUMAB
     Indication: UVEITIS
     Route: 058
     Dates: start: 20170710

REACTIONS (7)
  - Cholelithiasis [Recovering/Resolving]
  - Injection site pain [Unknown]
  - Blindness unilateral [Not Recovered/Not Resolved]
  - Incision site hyperaesthesia [Recovering/Resolving]
  - Visual impairment [Not Recovered/Not Resolved]
  - Lack of injection site rotation [Unknown]
  - Injection site haemorrhage [Unknown]

NARRATIVE: CASE EVENT DATE: 2018
